FAERS Safety Report 19350300 (Version 1)
Quarter: 2021Q2

REPORT INFORMATION
  Report Type: Spontaneous
  Country: US (occurrence: US)
  Receive Date: 20210531
  Receipt Date: 20210531
  Transmission Date: 20210717
  Serious: No
  Sender: FDA-Public Use
  Company Number: None

PATIENT
  Age: 59 Year
  Sex: Female

DRUGS (1)
  1. HUMIRA [Suspect]
     Active Substance: ADALIMUMAB
     Indication: RHEUMATOID ARTHRITIS
     Dosage: 40MG/0.4ML WEEKLY SUBCUTANEOUS
     Route: 058
     Dates: start: 20210325

REACTIONS (5)
  - Injection site warmth [None]
  - Injection site erythema [None]
  - Injection site inflammation [None]
  - Erythema [None]
  - Injection site pain [None]

NARRATIVE: CASE EVENT DATE: 20210401
